FAERS Safety Report 22017072 (Version 2)
Quarter: 2023Q2

REPORT INFORMATION
  Report Type: Report from Study
  Country: DE (occurrence: None)
  Receive Date: 20230221
  Receipt Date: 20230417
  Transmission Date: 20230721
  Serious: Yes (Hospitalization)
  Sender: FDA-Public Use
  Company Number: DE-ROCHE-3287642

PATIENT
  Age: 76 Year
  Sex: Female
  Weight: 54 kg

DRUGS (5)
  1. ATEZOLIZUMAB [Suspect]
     Active Substance: ATEZOLIZUMAB
     Indication: Ovarian cancer recurrent
     Dosage: LAST DOSE/12/JAN/2021
     Route: 041
     Dates: start: 20190924, end: 20210112
  2. BEVACIZUMAB [Suspect]
     Active Substance: BEVACIZUMAB
     Indication: Ovarian cancer recurrent
     Dosage: ON 17/NOV/2020 PATIENT RECEIVED LAST DOSE OF BEVACIZUMAB
     Route: 042
     Dates: start: 20190924, end: 20201117
  3. PACLITAXEL [Suspect]
     Active Substance: PACLITAXEL
     Indication: Ovarian cancer recurrent
     Dosage: 0N 18/AUG/2020 LAST DOSE OF PACLITAXEL WAS RECEIVED.
     Route: 042
     Dates: start: 20190924
  4. PROLIA [Concomitant]
     Active Substance: DENOSUMAB
     Indication: Osteoporosis
     Dates: start: 20200226, end: 20200813
  5. PREDNISOLONE [Concomitant]
     Active Substance: PREDNISOLONE
     Indication: Lipase increased
     Dates: start: 20200519

REACTIONS (2)
  - Periodontal disease [Recovered/Resolved]
  - Osteonecrosis of jaw [Recovered/Resolved]

NARRATIVE: CASE EVENT DATE: 20210118
